FAERS Safety Report 4951603-7 (Version None)
Quarter: 2006Q1

REPORT INFORMATION
  Report Type: 
  Country: None (occurrence: None)
  Receive Date: 20060317
  Receipt Date: 20060304
  Transmission Date: 20060701
  Serious: Yes (Other)
  Sender: FDA-Public Use
  Company Number: 163-C5013-06030315

PATIENT
  Age: 85 Year
  Sex: Female
  Weight: 75.4 kg

DRUGS (2)
  1. LENALIDOMIDE [Suspect]
     Indication: MULTIPLE MYELOMA
     Dosage: 25 MG, QD ON DAYS 1-21, Q28D, ORAL
     Route: 048
     Dates: start: 20060215, end: 20060222
  2. DEXAMETHASONE [Suspect]
     Indication: MULTIPLE MYELOMA
     Dosage: 40 MG, QD, DAYS 1, 8, 15, AND 22, Q28D, ORAL
     Route: 048
     Dates: start: 20060215, end: 20060222

REACTIONS (4)
  - ERYTHEMA MULTIFORME [None]
  - HAEMOGLOBIN DECREASED [None]
  - STEVENS-JOHNSON SYNDROME [None]
  - TOXIC EPIDERMAL NECROLYSIS [None]
